FAERS Safety Report 13030811 (Version 1)
Quarter: 2016Q4

REPORT INFORMATION
  Report Type: Spontaneous
  Country: US (occurrence: US)
  Receive Date: 20161215
  Receipt Date: 20161215
  Transmission Date: 20170207
  Serious: No
  Sender: FDA-Public Use
  Company Number: US-BAUSCH-BL-2015-031180

PATIENT

DRUGS (4)
  1. DOXYCYCLINE. [Concomitant]
     Active Substance: DOXYCYCLINE
     Indication: COLITIS ULCERATIVE
  2. APRISO [Suspect]
     Active Substance: MESALAMINE
     Indication: COLITIS ULCERATIVE
  3. DOXYCYCLINE. [Concomitant]
     Active Substance: DOXYCYCLINE
     Indication: DIVERTICULITIS
     Route: 065
  4. APRISO [Suspect]
     Active Substance: MESALAMINE
     Indication: DIVERTICULITIS
     Route: 065

REACTIONS (4)
  - Pain in extremity [Unknown]
  - Rash macular [Unknown]
  - Peripheral swelling [Unknown]
  - Erythema [Unknown]
